FAERS Safety Report 7200396-1 (Version None)
Quarter: 2010Q4

REPORT INFORMATION
  Report Type: 
  Country: None (occurrence: None)
  Receive Date: 20101214
  Receipt Date: 20101126
  Transmission Date: 20110411
  Serious: Yes (Hospitalization, Other)
  Sender: FDA-Public Use
  Company Number: 2010P1002961

PATIENT
  Age: 85 Year
  Sex: Female

DRUGS (23)
  1. WARFARIN (NO PREF. NAME) [Suspect]
     Indication: ATRIAL FIBRILLATION
     Dosage: 1.5 MG; QD; PO
     Route: 048
     Dates: start: 20101105, end: 20101112
  2. CITALOPRAM [Concomitant]
  3. DOCUSATE [Concomitant]
  4. FERROUS GLUCONATE [Concomitant]
  5. ACETYSALICYLIC ACID [Concomitant]
  6. NITROGLYCERIN [Concomitant]
  7. HYDROMORPH [Concomitant]
  8. LIPITOR [Concomitant]
  9. METOPROLOL [Concomitant]
  10. FUROSEMIDE [Concomitant]
  11. AMLODIPINE [Concomitant]
  12. NITROGLYCERIN [Concomitant]
  13. LACTULOSE [Concomitant]
  14. VENTOLIN [Concomitant]
  15. CALCIUM [Concomitant]
  16. VITAMIN D [Concomitant]
  17. SPIRONOLACTONE [Concomitant]
  18. PLAVIX [Concomitant]
  19. DIGOXIN [Concomitant]
  20. SALINEX [Concomitant]
  21. CHLORIA NASAL SPRAY [Concomitant]
  22. PANTOPRAZOLE [Concomitant]
  23. PREV MEDS [Concomitant]

REACTIONS (3)
  - CARDIAC FAILURE CONGESTIVE [None]
  - CONDITION AGGRAVATED [None]
  - SKIN NECROSIS [None]
